FAERS Safety Report 19265480 (Version 1)
Quarter: 2021Q2

REPORT INFORMATION
  Report Type: Spontaneous
  Country: CA (occurrence: CA)
  Receive Date: 20210517
  Receipt Date: 20210517
  Transmission Date: 20210717
  Serious: Yes (Other)
  Sender: FDA-Public Use
  Company Number: CA-FRESENIUS KABI-FK202104783

PATIENT
  Age: 2 Year
  Sex: Female
  Weight: 12 kg

DRUGS (11)
  1. MESNA (MANUFACTURER UNKNOWN) [Suspect]
     Active Substance: MESNA
     Indication: BRAIN NEOPLASM
     Route: 065
  2. APREPITANT. [Concomitant]
     Active Substance: APREPITANT
     Indication: PRODUCT USED FOR UNKNOWN INDICATION
     Route: 065
  3. ETOPOSIDE (MANUFACTURER UNKNOWN) [Suspect]
     Active Substance: ETOPOSIDE
     Indication: BRAIN NEOPLASM
     Route: 065
  4. CYCLOPHOSPHAMIDE. [Suspect]
     Active Substance: CYCLOPHOSPHAMIDE
     Indication: BRAIN NEOPLASM
     Route: 065
  5. VINCRISTINE SULFATE. [Suspect]
     Active Substance: VINCRISTINE SULFATE
     Indication: BRAIN NEOPLASM
     Route: 065
  6. METOCLOPRAMIDE. [Concomitant]
     Active Substance: METOCLOPRAMIDE
     Indication: PRODUCT USED FOR UNKNOWN INDICATION
     Route: 065
  7. LORAZEPAM. [Concomitant]
     Active Substance: LORAZEPAM
     Indication: PRODUCT USED FOR UNKNOWN INDICATION
     Route: 065
  8. DIPHENHYDRAMINE. [Concomitant]
     Active Substance: DIPHENHYDRAMINE
     Indication: PRODUCT USED FOR UNKNOWN INDICATION
     Route: 065
  9. ONDANSETRON [Concomitant]
     Active Substance: ONDANSETRON
     Indication: PRODUCT USED FOR UNKNOWN INDICATION
     Route: 065
  10. FILGRASTIM [Concomitant]
     Active Substance: FILGRASTIM
     Indication: PRODUCT USED FOR UNKNOWN INDICATION
     Route: 065
  11. CISPLATIN. [Suspect]
     Active Substance: CISPLATIN
     Indication: BRAIN NEOPLASM
     Dosage: CISPLATIN INJECTION
     Route: 065

REACTIONS (1)
  - Febrile neutropenia [Recovered/Resolved]
